FAERS Safety Report 6521098-0 (Version None)
Quarter: 2009Q4

REPORT INFORMATION
  Report Type: 
  Country: None (occurrence: None)
  Receive Date: 20091222
  Receipt Date: 20091214
  Transmission Date: 20100525
  Serious: Yes (Hospitalization)
  Sender: FDA-Public Use
  Company Number: SPI200900404

PATIENT
  Age: 78 Year
  Sex: Male
  Weight: 145.1 kg

DRUGS (17)
  1. AMITIZA [Suspect]
     Indication: CONSTIPATION
     Dosage: 8 MCG, PM, ORAL
     Route: 048
     Dates: start: 20091101
  2. CHARCOAL ACTIVATED (CHARCOAL, ACTIVATED) [Suspect]
  3. ALLOPURINOL [Concomitant]
  4. CALCITROL (CALCIUM CARBONATE, ERGOCALCIFEROL, RETINOL) [Concomitant]
  5. COREG [Concomitant]
  6. COZAAR [Concomitant]
  7. LASIX [Concomitant]
  8. LEVOTHYROXINE SODIUM [Concomitant]
  9. PROBENECID [Concomitant]
  10. VITAMIN D [Concomitant]
  11. LOVASTATIN [Concomitant]
  12. HUMULIN 70/30 (INSULIN HUMAN, INSULIN HUMAN INJECTION, ISOPHANE) [Concomitant]
  13. LANTUS [Concomitant]
  14. ASPIRIN [Concomitant]
  15. MIRALAX [Concomitant]
  16. POTASSIUM (POTASSIUM GLUCONATE) [Concomitant]
  17. MULTIVITAMIN (VITAMIN NOS) [Concomitant]

REACTIONS (11)
  - ACCIDENTAL OVERDOSE [None]
  - DEHYDRATION [None]
  - DIARRHOEA [None]
  - DIZZINESS [None]
  - DYSPHAGIA [None]
  - FAECES DISCOLOURED [None]
  - NAUSEA [None]
  - OROPHARYNGEAL PAIN [None]
  - ORTHOSTATIC HYPOTENSION [None]
  - VOMITING [None]
  - WEIGHT DECREASED [None]
